FAERS Safety Report 21628142 (Version 1)
Quarter: 2022Q4

REPORT INFORMATION
  Report Type: Spontaneous
  Country: US (occurrence: None)
  Receive Date: 20221121
  Receipt Date: 20221121
  Transmission Date: 20230113
  Serious: Yes (Other)
  Sender: FDA-Public Use
  Company Number: None

PATIENT
  Age: 27 Year
  Sex: Male
  Weight: 81 kg

DRUGS (1)
  1. PRED FORTE [Suspect]
     Active Substance: PREDNISOLONE ACETATE
     Indication: Ocular hyperaemia
     Dosage: FREQUENCY : 4 TIMES A DAY;?
     Route: 047
     Dates: start: 20220414, end: 20220428

REACTIONS (4)
  - Vision blurred [None]
  - Dry eye [None]
  - Vitreous floaters [None]
  - Insomnia [None]

NARRATIVE: CASE EVENT DATE: 20220428
